FAERS Safety Report 6661664-5 (Version None)
Quarter: 2010Q1

REPORT INFORMATION
  Report Type: 
  Country: None (occurrence: None)
  Receive Date: 20100331
  Receipt Date: 20090404
  Transmission Date: 20100710
  Serious: Yes (Other)
  Sender: FDA-Public Use
  Company Number: US-BRISTOL-MYERS SQUIBB COMPANY-14570865

PATIENT
  Age: 75 Year
  Sex: Male

DRUGS (4)
  1. ERBITUX [Suspect]
     Indication: HEAD AND NECK CANCER
     Dosage: 1 DOSAGE FORM = 10-20 DROPS;INITIAL PLANNED DOSE 800MG, BUT STOPPED WITHIN DROPS
     Route: 042
  2. DECADRON [Concomitant]
     Indication: PREMEDICATION
     Route: 042
  3. BENADRYL [Concomitant]
     Indication: PREMEDICATION
     Route: 042
  4. TAGAMET [Concomitant]
     Indication: PREMEDICATION
     Route: 042

REACTIONS (1)
  - INFUSION RELATED REACTION [None]
